FAERS Safety Report 7715285-3 (Version None)
Quarter: 2011Q3

REPORT INFORMATION
  Report Type: 
  Country: None (occurrence: None)
  Receive Date: 20110810
  Receipt Date: 20110527
  Transmission Date: 20111222
  Serious: No
  Sender: FDA-Public Use
  Company Number: 1000021219

PATIENT
  Age: 57 Year
  Sex: Female

DRUGS (10)
  1. ULTRAM (TRAMADOL HYDROCHLORIDE) (TRAMADOL HYDROCHLORIDE) [Concomitant]
  2. SYNTHROID (LEVOTHYROXINE SODIUM) (LEVOTHYROXINE SODIUM) [Concomitant]
  3. TRAZODONE (TRAZODONE) (TRAZODONE) [Concomitant]
  4. PROVIGIL [Concomitant]
  5. METHADONE (METHADONE) (METHADONE) [Concomitant]
  6. SAVELLA [Suspect]
     Indication: FIBROMYALGIA
     Dosage: SEE IMAGE, ORAL
     Route: 048
     Dates: start: 20110501, end: 20110501
  7. SAVELLA [Suspect]
     Indication: FIBROMYALGIA
     Dosage: SEE IMAGE, ORAL
     Route: 048
     Dates: start: 20110501, end: 20110501
  8. SAVELLA [Suspect]
     Indication: FIBROMYALGIA
     Dosage: SEE IMAGE, ORAL
     Route: 048
     Dates: start: 20110501, end: 20110501
  9. SAVELLA [Suspect]
     Indication: FIBROMYALGIA
     Dosage: SEE IMAGE, ORAL
     Route: 048
     Dates: start: 20110501
  10. ZOMIG (ZOLMITRIPTAN) (ZOLMITRIPTAN) [Concomitant]

REACTIONS (6)
  - FEELING JITTERY [None]
  - FATIGUE [None]
  - PALPITATIONS [None]
  - TREMOR [None]
  - AGITATION [None]
  - NIGHT SWEATS [None]
